FAERS Safety Report 8433738-X (Version None)
Quarter: 2012Q2

REPORT INFORMATION
  Report Type: 
  Country: None (occurrence: None)
  Receive Date: 20120613
  Receipt Date: 20120606
  Transmission Date: 20120825
  Serious: No
  Sender: FDA-Public Use
  Company Number: US-PFIZER INC-2012137369

PATIENT

DRUGS (9)
  1. ERYTHROMYCIN [Suspect]
     Dosage: UNK
  2. IODINE [Suspect]
     Dosage: UNK
  3. NORCO [Suspect]
     Dosage: UNK
  4. CIPROFLOXACIN HCL [Suspect]
     Dosage: UNK
  5. CODEINE SULFATE [Suspect]
     Dosage: UNK
  6. METHOTREXATE SODIUM [Suspect]
     Dosage: UNK
  7. LOTREL [Suspect]
     Dosage: UNK
  8. CLINDAMYCIN HCL [Suspect]
     Dosage: UNK
  9. NIACIN [Suspect]
     Dosage: UNK

REACTIONS (1)
  - DRUG HYPERSENSITIVITY [None]
